FAERS Safety Report 19596829 (Version 1)
Quarter: 2021Q3

REPORT INFORMATION
  Report Type: Spontaneous
  Country: US (occurrence: US)
  Receive Date: 20210722
  Receipt Date: 20210722
  Transmission Date: 20211014
  Serious: Yes (Hospitalization)
  Sender: FDA-Public Use
  Company Number: US-VERTEX PHARMACEUTICALS-2019-004925

PATIENT
  Age: 27 Year
  Sex: Male

DRUGS (1)
  1. SYMDEKO [Suspect]
     Active Substance: IVACAFTOR\TEZACAFTOR
     Indication: CYSTIC FIBROSIS
     Dosage: 100MG TEZACAFTOR/150MG IVACAFTOR; 150MG IVACAFTOR (REGULAR DOSE)
     Route: 048
     Dates: start: 20180328, end: 20190501

REACTIONS (2)
  - Procedural pain [Unknown]
  - Bronchial haemorrhage [Unknown]

NARRATIVE: CASE EVENT DATE: 201905
